FAERS Safety Report 5565361-9 (Version None)
Quarter: 2007Q4

REPORT INFORMATION
  Report Type: 
  Country: None (occurrence: None)
  Receive Date: 20071218
  Receipt Date: 20040614
  Transmission Date: 20080405
  Serious: Yes (Death, Disabling)
  Sender: FDA-Public Use
  Company Number: JP-ROCHE-364106

PATIENT
  Age: 66 Year
  Sex: Female
  Weight: 37 kg

DRUGS (2)
  1. XELODA [Suspect]
     Indication: BREAST CANCER
     Route: 048
     Dates: start: 20040405, end: 20040406
  2. UNSPECIFIED DRUG [Concomitant]
     Route: 048
     Dates: start: 20040307, end: 20040410

REACTIONS (3)
  - ALTERED STATE OF CONSCIOUSNESS [None]
  - DISEASE PROGRESSION [None]
  - SOMNOLENCE [None]
